FAERS Safety Report 21190118 (Version 1)
Quarter: 2022Q3

REPORT INFORMATION
  Report Type: Spontaneous
  Country: US (occurrence: None)
  Receive Date: 20220809
  Receipt Date: 20220809
  Transmission Date: 20221027
  Serious: Yes (Hospitalization)
  Sender: FDA-Public Use
  Company Number: None

PATIENT
  Sex: Male
  Weight: 105.5 kg

DRUGS (2)
  1. CARBOPLATIN [Suspect]
     Active Substance: CARBOPLATIN
     Dates: end: 20220726
  2. TAXOL [Suspect]
     Active Substance: PACLITAXEL
     Dates: end: 20220726

REACTIONS (7)
  - Cardiac failure [None]
  - Atrial fibrillation [None]
  - Treatment noncompliance [None]
  - Cough [None]
  - Wheezing [None]
  - Dyspnoea at rest [None]
  - Polyuria [None]

NARRATIVE: CASE EVENT DATE: 20220727
